FAERS Safety Report 21854711 (Version 1)
Quarter: 2023Q1

REPORT INFORMATION
  Report Type: Report from Study
  Country: US (occurrence: US)
  Receive Date: 20230112
  Receipt Date: 20230112
  Transmission Date: 20230417
  Serious: Yes (Other)
  Sender: FDA-Public Use
  Company Number: US-TAKEDA-2023TUS003728

PATIENT
  Age: 74 Year
  Sex: Female
  Weight: 81.63 kg

DRUGS (23)
  1. HUMAN IMMUNOGLOBULIN G [Suspect]
     Active Substance: HUMAN IMMUNOGLOBULIN G
     Indication: Selective IgG subclass deficiency
     Dosage: 20 GRAM, Q2WEEKS
     Route: 058
     Dates: start: 20221129
  2. DIPHENHYDRAMINE [Concomitant]
     Active Substance: DIPHENHYDRAMINE
  3. DALIRESP [Concomitant]
     Active Substance: ROFLUMILAST
  4. SIMVASTATIN [Concomitant]
     Active Substance: SIMVASTATIN
  5. VITAMIN D3 [Concomitant]
     Active Substance: CHOLECALCIFEROL
  6. EPINEPHRINE [Concomitant]
     Active Substance: EPINEPHRINE
  7. EZETIMIBE [Concomitant]
     Active Substance: EZETIMIBE
  8. AUVI-Q [Concomitant]
     Active Substance: EPINEPHRINE
  9. CELEBREX [Concomitant]
     Active Substance: CELECOXIB
  10. NEXIUM [Concomitant]
     Active Substance: ESOMEPRAZOLE MAGNESIUM
  11. TRELEGY ELLIPTA [Concomitant]
     Active Substance: FLUTICASONE FUROATE\UMECLIDINIUM BROMIDE\VILANTEROL TRIFENATATE
  12. ACETAMINOPHEN [Concomitant]
     Active Substance: ACETAMINOPHEN
  13. ALBUTEROL\IPRATROPIUM [Concomitant]
     Active Substance: ALBUTEROL\IPRATROPIUM
  14. ZINC [Concomitant]
     Active Substance: ZINC
  15. IBU [Concomitant]
     Active Substance: IBUPROFEN
  16. METAMUCIL [Concomitant]
     Active Substance: PLANTAGO SEED
  17. VITAMIN C [Concomitant]
     Active Substance: ASCORBIC ACID
  18. MAGNESIUM [Concomitant]
     Active Substance: MAGNESIUM
  19. MUCINEX [Concomitant]
     Active Substance: GUAIFENESIN
  20. Lmx [Concomitant]
  21. CETIRIZINE HCL [Concomitant]
     Active Substance: CETIRIZINE HYDROCHLORIDE
  22. COMBIVENT RESPIMAT [Concomitant]
     Active Substance: ALBUTEROL SULFATE\IPRATROPIUM BROMIDE
  23. PENNSAID [Concomitant]
     Active Substance: DICLOFENAC SODIUM

REACTIONS (1)
  - Pneumonia [Unknown]

NARRATIVE: CASE EVENT DATE: 20221222
